FAERS Safety Report 6745942-7 (Version None)
Quarter: 2010Q2

REPORT INFORMATION
  Report Type: 
  Country: None (occurrence: None)
  Receive Date: 20100528
  Receipt Date: 20100514
  Transmission Date: 20101027
  Serious: Yes (Death, Hospitalization, Other)
  Sender: FDA-Public Use
  Company Number: FR-ELI_LILLY_AND_COMPANY-FR201004002378

PATIENT
  Age: 82 Year
  Sex: Female

DRUGS (2)
  1. FORTEO [Suspect]
     Indication: OSTEOPOROSIS
     Dosage: 20 UG, DAILY (1/D)
     Dates: start: 20100104, end: 20100228
  2. FORTEO [Suspect]
     Dosage: 20 UG, DAILY (1/D)
     Dates: start: 20100101

REACTIONS (6)
  - BILE DUCT CANCER [None]
  - DEATH [None]
  - GASTROINTESTINAL CARCINOMA [None]
  - HEPATIC NEOPLASM MALIGNANT [None]
  - HEPATIC VEIN OCCLUSION [None]
  - PANCREATIC CARCINOMA [None]
